FAERS Safety Report 8297443-5 (Version None)
Quarter: 2012Q2

REPORT INFORMATION
  Report Type: 
  Country: None (occurrence: None)
  Receive Date: 20120417
  Receipt Date: 20120329
  Transmission Date: 20120825
  Serious: Yes (Other)
  Sender: FDA-Public Use
  Company Number: 83042

PATIENT
  Age: 47 Year
  Sex: Male

DRUGS (1)
  1. FLETCHER'S GENTLE LAXATIVE FOR KIDS, 167 MG/TSP [Suspect]
     Indication: CONSTIPATION
     Dosage: 4 TSP, ORAL
     Route: 048
     Dates: start: 20120327

REACTIONS (2)
  - MALAISE [None]
  - DIARRHOEA [None]
